FAERS Safety Report 8126225-X (Version None)
Quarter: 2012Q1

REPORT INFORMATION
  Report Type: 
  Country: None (occurrence: None)
  Receive Date: 20120209
  Receipt Date: 20120206
  Transmission Date: 20120608
  Serious: Yes (Death, Hospitalization, Other)
  Sender: FDA-Public Use
  Company Number: PHHY2012BR010380

PATIENT
  Age: 75 Year
  Sex: Male

DRUGS (1)
  1. DIOVAN [Suspect]
     Indication: HYPERTENSION
     Dosage: ONE TABLET DAILY

REACTIONS (4)
  - RENAL FAILURE [None]
  - THROAT IRRITATION [None]
  - CARDIO-RESPIRATORY ARREST [None]
  - PULMONARY OEDEMA [None]
